FAERS Safety Report 4360788-5 (Version None)
Quarter: 2004Q2

REPORT INFORMATION
  Report Type: 
  Country: None (occurrence: None)
  Receive Date: 20040517
  Receipt Date: 20040506
  Transmission Date: 20050107
  Serious: Yes (Life-Threatening, Hospitalization, Other)
  Sender: FDA-Public Use
  Company Number: 2004205549FR

PATIENT
  Age: 82 Year
  Sex: Male
  Weight: 61.5 kg

DRUGS (1)
  1. CELEBREX [Suspect]
     Indication: OSTEOARTHRITIS
     Dosage: 200 MG , QD, ORAL
     Route: 048
     Dates: start: 20040312

REACTIONS (4)
  - COLON CANCER [None]
  - DIVERTICULUM INTESTINAL HAEMORRHAGIC [None]
  - HAEMATOCHEZIA [None]
  - SIGMOIDITIS [None]
